FAERS Safety Report 15984328 (Version 8)
Quarter: 2020Q4

REPORT INFORMATION
  Report Type: Spontaneous
  Country: JP (occurrence: JP)
  Receive Date: 20190219
  Receipt Date: 20201224
  Transmission Date: 20210113
  Serious: Yes (Life-Threatening, Hospitalization, Other)
  Sender: FDA-Public Use
  Company Number: JP-BRISTOL-MYERS SQUIBB COMPANY-BMS-2019-015064

PATIENT
  Age: 81 Year
  Sex: Female
  Weight: 53.5 kg

DRUGS (3)
  1. YERVOY [Suspect]
     Active Substance: IPILIMUMAB
     Indication: METASTATIC RENAL CELL CARCINOMA
     Dosage: 50 MILLIGRAM
     Route: 041
     Dates: start: 20181128, end: 20190108
  2. OPDIVO [Suspect]
     Active Substance: NIVOLUMAB
     Indication: METASTATIC RENAL CELL CARCINOMA
     Dosage: 240 MILLIGRAM
     Route: 041
     Dates: start: 20181128, end: 20190108
  3. OPDIVO [Suspect]
     Active Substance: NIVOLUMAB
     Dosage: 240 MILLIGRAM
     Route: 041
     Dates: end: 20200403

REACTIONS (2)
  - Drug-induced liver injury [Recovering/Resolving]
  - Enterocolitis [Recovering/Resolving]

NARRATIVE: CASE EVENT DATE: 20190129
